FAERS Safety Report 9178719 (Version 1)
Quarter: 2012Q4

REPORT INFORMATION
  Report Type: 
  Country: US (occurrence: US)
  Receive Date: 20121029
  Receipt Date: 20121029
  Transmission Date: 20130627
  Serious: No
  Sender: FDA-Public Use
  Company Number: US-PFIZER INC-2012269319

PATIENT
  Age: 57 Year
  Sex: Female
  Weight: 86.17 kg

DRUGS (9)
  1. CHANTIX [Suspect]
     Indication: SMOKING CESSATION THERAPY
     Dosage: 0.5 mg, 1x/day
     Route: 048
     Dates: start: 201101, end: 201101
  2. CHANTIX [Suspect]
     Dosage: 0.5 mg, 2x/day
     Route: 048
     Dates: start: 201101, end: 201101
  3. HYDRALAZINE [Concomitant]
     Dosage: 25 mg, UNK
  4. AMLODIPINE [Concomitant]
     Indication: BLOOD PRESSURE HIGH
     Dosage: UNK
  5. WARFARIN [Concomitant]
     Dosage: UNK
  6. METOPROLOL [Concomitant]
     Indication: BLOOD PRESSURE HIGH
     Dosage: UNK
  7. DETROL [Concomitant]
     Dosage: UNK
  8. CYCLOBENZAPRINE [Concomitant]
     Dosage: UNK
  9. OXYCODONE [Concomitant]
     Dosage: UNK

REACTIONS (1)
  - Nausea [Recovered/Resolved]
